FAERS Safety Report 15049060 (Version 3)
Quarter: 2018Q3

REPORT INFORMATION
  Report Type: Spontaneous
  Country: DE (occurrence: DE)
  Receive Date: 20180622
  Receipt Date: 20180710
  Transmission Date: 20181010
  Serious: Yes (Hospitalization)
  Sender: FDA-Public Use
  Company Number: PHHY2018DE026958

PATIENT
  Sex: Male

DRUGS (1)
  1. VOTRIENT [Suspect]
     Active Substance: PAZOPANIB HYDROCHLORIDE
     Indication: PRODUCT USED FOR UNKNOWN INDICATION
     Dosage: UNK
     Route: 065

REACTIONS (7)
  - Dysgeusia [Unknown]
  - Productive cough [Unknown]
  - Diabetic foot [Unknown]
  - Diarrhoea [Unknown]
  - Peripheral coldness [Unknown]
  - Dysphonia [Unknown]
  - Arthralgia [Unknown]

NARRATIVE: CASE EVENT DATE: 20180612
